FAERS Safety Report 26098136 (Version 1)
Quarter: 2025Q4

REPORT INFORMATION
  Report Type: Spontaneous
  Country: US (occurrence: US)
  Receive Date: 20251127
  Receipt Date: 20251127
  Transmission Date: 20260118
  Serious: Yes (Other)
  Sender: GLAXOSMITHKLINE
  Company Number: US-GLAXOSMITHKLINE INC-US2025150985

PATIENT
  Age: 83 Year
  Sex: Male

DRUGS (2)
  1. ANORO ELLIPTA [Suspect]
     Active Substance: UMECLIDINIUM BROMIDE\VILANTEROL TRIFENATATE
     Indication: Pulmonary fibrosis
     Dosage: UNK
  2. DOXYCYCLINE [Concomitant]
     Active Substance: DOXYCYCLINE
     Indication: Pneumonia
     Dosage: UNK

REACTIONS (2)
  - Pneumonia [Not Recovered/Not Resolved]
  - Off label use [Unknown]

NARRATIVE: CASE EVENT DATE: 20251107
